FAERS Safety Report 11535703 (Version 2)
Quarter: 2016Q4

REPORT INFORMATION
  Report Type: Spontaneous
  Country: US (occurrence: US)
  Receive Date: 20150903
  Receipt Date: 20161123
  Transmission Date: 20170206
  Serious: No
  Sender: FDA-Public Use
  Company Number: US-ELI_LILLY_AND_COMPANY-US201101006058

PATIENT
  Sex: Male

DRUGS (5)
  1. LEVEMIR [Concomitant]
     Active Substance: INSULIN DETEMIR
     Dosage: 5 U, QD
     Dates: start: 2011, end: 201611
  2. LANTUS [Concomitant]
     Active Substance: INSULIN GLARGINE
     Indication: TYPE 2 DIABETES MELLITUS
     Dosage: 8 U, EACH EVENING
  3. HUMALOG [Suspect]
     Active Substance: INSULIN LISPRO
     Indication: PROMOTION OF WOUND HEALING
  4. HUMALOG [Suspect]
     Active Substance: INSULIN LISPRO
     Indication: TYPE 2 DIABETES MELLITUS
     Dosage: 5 U, QID
     Route: 065
     Dates: start: 2010, end: 20161114
  5. NOVOLOG [Concomitant]
     Active Substance: INSULIN ASPART

REACTIONS (4)
  - Blood glucose increased [Not Recovered/Not Resolved]
  - Glycosylated haemoglobin increased [Not Recovered/Not Resolved]
  - Pain in extremity [Unknown]
  - Neuropathy peripheral [Not Recovered/Not Resolved]

NARRATIVE: CASE EVENT DATE: 2010
